FAERS Safety Report 14772760 (Version 1)
Quarter: 2018Q2

REPORT INFORMATION
  Report Type: Spontaneous
  Country: US (occurrence: US)
  Receive Date: 20180418
  Receipt Date: 20180418
  Transmission Date: 20180711
  Serious: No
  Sender: FDA-Public Use
  Company Number: US-TEVA-2018-US-882235

PATIENT
  Sex: Female

DRUGS (3)
  1. XTANDI [Suspect]
     Active Substance: ENZALUTAMIDE
     Indication: PROSTATE CANCER
     Dosage: 160 MILLIGRAM DAILY;
     Route: 048
     Dates: start: 20180210
  2. DEFERASIROX [Suspect]
     Active Substance: DEFERASIROX
     Dosage: 4 DOSAGE FORMS DAILY;
     Route: 048
  3. DEFERASIROX [Suspect]
     Active Substance: DEFERASIROX
     Dosage: 2 DOSAGE FORMS DAILY;
     Route: 048

REACTIONS (1)
  - Abdominal discomfort [Unknown]
